FAERS Safety Report 15678560 (Version 3)
Quarter: 2019Q2

REPORT INFORMATION
  Report Type: Spontaneous
  Country: GB (occurrence: GB)
  Receive Date: 20181201
  Receipt Date: 20190610
  Transmission Date: 20190711
  Serious: Yes (Death, Hospitalization, Other)
  Sender: FDA-Public Use
  Company Number: PHHY2018GB172242

PATIENT
  Age: 41 Year
  Sex: Female

DRUGS (1)
  1. COSENTYX [Suspect]
     Active Substance: SECUKINUMAB
     Indication: PSORIASIS
     Dosage: UNK
     Route: 065

REACTIONS (6)
  - Peripancreatic fluid collection [Unknown]
  - Sepsis [Fatal]
  - Cerebrovascular accident [Unknown]
  - Multiple organ dysfunction syndrome [Fatal]
  - Myocarditis [Fatal]
  - Intestinal ischaemia [Fatal]
